FAERS Safety Report 5591625-9 (Version None)
Quarter: 2008Q1

REPORT INFORMATION
  Report Type: 
  Country: None (occurrence: None)
  Receive Date: 20080115
  Receipt Date: 20080103
  Transmission Date: 20080703
  Serious: Yes (Death, Hospitalization)
  Sender: FDA-Public Use
  Company Number: PA-ROCHE-536748

PATIENT
  Age: 56 Year
  Sex: Female
  Weight: 55 kg

DRUGS (4)
  1. CAPECITABINE [Suspect]
     Dosage: 2500 MG, QD X 14
     Route: 048
     Dates: start: 20070920, end: 20071213
  2. BLINDED BEVACIZUMAB [Suspect]
     Dosage: 780 MG, Q3W
     Route: 042
     Dates: start: 20070228
  3. INSULINE [Concomitant]
     Indication: DRUG USE FOR UNKNOWN INDICATION
     Dosage: 30 UNK, UNK
     Dates: start: 20071217
  4. DIPYRONE-MAGNESIUM ANALOG [Concomitant]
     Indication: DRUG USE FOR UNKNOWN INDICATION
     Dates: start: 20071216

REACTIONS (1)
  - CARDIOGENIC SHOCK [None]
